FAERS Safety Report 12892769 (Version 3)
Quarter: 2017Q4

REPORT INFORMATION
  Report Type: Report from Study
  Country: IT (occurrence: IT)
  Receive Date: 20161028
  Receipt Date: 20171005
  Transmission Date: 20180320
  Serious: Yes (Life-Threatening)
  Sender: FDA-Public Use
  Company Number: IT-TEVA-706738ACC

PATIENT
  Age: 38 Year
  Sex: Male

DRUGS (3)
  1. DELORAZEPAM HEXAL - 1 MG/ML GOCCE ORALI, SOLUZIONE - SANDOZ S.P.A. [Suspect]
     Active Substance: DELORAZEPAM
     Indication: PRODUCT USED FOR UNKNOWN INDICATION
     Route: 048
     Dates: start: 20160911, end: 20160911
  2. QUETIAPINA TEVA - 200 MG COMPRESSE RIVESTITE CON FILM [Suspect]
     Active Substance: QUETIAPINE
     Indication: PRODUCT USED FOR UNKNOWN INDICATION
     Route: 048
     Dates: start: 20160911, end: 20160911
  3. BENERVA - 300 MG COMPRESSE GASTRORESISTENTI - TEOFARMA S.R.L. [Suspect]
     Active Substance: THIAMINE HYDROCHLORIDE
     Indication: PRODUCT USED FOR UNKNOWN INDICATION
     Route: 048
     Dates: start: 20160911, end: 20160911

REACTIONS (2)
  - Drug abuse [Recovered/Resolved with Sequelae]
  - Alcohol abuse [Recovered/Resolved with Sequelae]

NARRATIVE: CASE EVENT DATE: 20160911
